FAERS Safety Report 10334398 (Version 1)
Quarter: 2014Q3

REPORT INFORMATION
  Report Type: Spontaneous
  Country: US (occurrence: None)
  Receive Date: 20140721
  Receipt Date: 20140721
  Transmission Date: 20150326
  Serious: No
  Sender: FDA-Public Use
  Company Number: None

PATIENT
  Age: 10 Year
  Sex: Male
  Weight: 33.57 kg

DRUGS (1)
  1. METHYLPHENIDATE ER [Suspect]
     Active Substance: METHYLPHENIDATE
     Indication: ATTENTION DEFICIT/HYPERACTIVITY DISORDER
     Dosage: 1 PILL ONCE DAILY TAKEN BY MOUTH
     Route: 048
     Dates: start: 20140715, end: 20140720

REACTIONS (8)
  - Disturbance in attention [None]
  - Product formulation issue [None]
  - Product quality issue [None]
  - Movement disorder [None]
  - Frustration [None]
  - Drug effect decreased [None]
  - Tearfulness [None]
  - Product substitution issue [None]

NARRATIVE: CASE EVENT DATE: 20140719
